FAERS Safety Report 8021098-8 (Version None)
Quarter: 2012Q1

REPORT INFORMATION
  Report Type: 
  Country: None (occurrence: None)
  Receive Date: 20120104
  Receipt Date: 20111220
  Transmission Date: 20120608
  Serious: Yes (Other)
  Sender: FDA-Public Use
  Company Number: JP-UCBSA-029784

PATIENT
  Age: 28 Year
  Sex: Female

DRUGS (9)
  1. RISPERDAL [Concomitant]
     Indication: PSYCHIATRIC SYMPTOM
     Dosage: DAILY DOSE:1MG
     Route: 048
     Dates: start: 20090209
  2. ZOLPIDEM [Concomitant]
     Indication: INSOMNIA
     Dosage: DAILY DOSE :5MG
     Route: 048
     Dates: start: 20090421
  3. KEPPRA [Suspect]
     Route: 048
     Dates: start: 20110111, end: 20110209
  4. KEPPRA [Suspect]
     Route: 048
     Dates: start: 20110210, end: 20110309
  5. DIAZEPAM [Concomitant]
     Indication: TEMPORAL LOBE EPILEPSY
     Dosage: DAILY DOSE: 6MG
     Route: 048
     Dates: start: 20081230
  6. SINGULAIR [Concomitant]
     Indication: ASTHMA
     Dosage: DAILY DOSE:10MG
     Route: 048
     Dates: start: 20090507
  7. KEPPRA [Suspect]
     Indication: TEMPORAL LOBE EPILEPSY
     Route: 048
     Dates: start: 20110310
  8. DEPAKENE [Concomitant]
     Indication: TEMPORAL LOBE EPILEPSY
     Dosage: DAILY DOSE:700MG
     Route: 048
     Dates: start: 20090209
  9. FOLIC ACID [Concomitant]
     Indication: VITAMIN SUPPLEMENTATION
     Dosage: DAILY DOSE: 15MG
     Route: 048
     Dates: start: 20100430

REACTIONS (2)
  - MATERNAL EXPOSURE DURING PREGNANCY [None]
  - ABORTION SPONTANEOUS [None]
